FAERS Safety Report 20788086 (Version 1)
Quarter: 2022Q2

REPORT INFORMATION
  Report Type: Report from Study
  Country: US (occurrence: US)
  Receive Date: 20220505
  Receipt Date: 20220505
  Transmission Date: 20220721
  Serious: Yes (Other)
  Sender: FDA-Public Use
  Company Number: US-Accord-262651

PATIENT
  Sex: Male
  Weight: 90.72 kg

DRUGS (1)
  1. CLOZAPINE [Suspect]
     Active Substance: CLOZAPINE
     Indication: Schizophrenia
     Dosage: 150MG AT BED TIME
     Route: 048
     Dates: end: 20210916

REACTIONS (2)
  - Atrial fibrillation [Unknown]
  - Drug level increased [Unknown]
